FAERS Safety Report 12096367 (Version 2)
Quarter: 2016Q1

REPORT INFORMATION
  Report Type: Spontaneous
  Country: US (occurrence: US)
  Receive Date: 20160220
  Receipt Date: 20160321
  Transmission Date: 20160526
  Serious: Yes (Other)
  Sender: FDA-Public Use
  Company Number: US-AUROBINDO-AUR-APL-2016-01602

PATIENT
  Age: 56 Year
  Sex: Male

DRUGS (1)
  1. MINOCYCLINE [Suspect]
     Active Substance: MINOCYCLINE\MINOCYCLINE HYDROCHLORIDE
     Indication: ACNE
     Dosage: UNK
     Route: 065

REACTIONS (4)
  - Tooth discolouration [Recovered/Resolved]
  - Nail discolouration [Recovered/Resolved]
  - Angiopathy [Recovered/Resolved]
  - Scleral discolouration [Recovered/Resolved]
